FAERS Safety Report 10256075 (Version 1)
Quarter: 2014Q2

REPORT INFORMATION
  Report Type: Spontaneous
  Country: US (occurrence: US)
  Receive Date: 20140624
  Receipt Date: 20140624
  Transmission Date: 20141212
  Serious: Yes (Hospitalization, Other)
  Sender: FDA-Public Use
  Company Number: US-ZOGENIX, INC.-2012ZX000096

PATIENT
  Sex: Female
  Weight: 74.91 kg

DRUGS (3)
  1. SUMAVEL DOSEPRO [Suspect]
     Indication: MIGRAINE
     Dates: start: 20120229, end: 20120229
  2. SUMAVEL DOSEPRO [Suspect]
     Dates: start: 2011
  3. IMITREX [Concomitant]
     Indication: MIGRAINE

REACTIONS (4)
  - Migraine [Recovered/Resolved]
  - Convulsion [Recovered/Resolved]
  - Malaise [Recovered/Resolved]
  - Thinking abnormal [Recovered/Resolved]
